FAERS Safety Report 8971733 (Version 1)
Quarter: 2012Q4

REPORT INFORMATION
  Report Type: 
  Country: BR (occurrence: BR)
  Receive Date: 20121217
  Receipt Date: 20121217
  Transmission Date: 20130627
  Serious: Yes (Hospitalization)
  Sender: FDA-Public Use
  Company Number: BR-ASTRAZENECA-2012SE92476

PATIENT
  Age: 84 Year
  Sex: Male
  Weight: 75 kg

DRUGS (3)
  1. VANNAIR [Suspect]
     Indication: NASOPHARYNGITIS
     Dosage: 160/4.5 MCG, 2 SPRAYS BID
     Route: 055
     Dates: start: 2011
  2. HERBAL NOS [Suspect]
     Indication: URINARY RETENTION
     Route: 048
     Dates: start: 2011, end: 201212
  3. EXELON [Concomitant]
     Indication: DEMENTIA ALZHEIMER^S TYPE
     Route: 048
     Dates: start: 2010

REACTIONS (3)
  - Pneumonia [Recovered/Resolved]
  - Tracheobronchitis [Recovered/Resolved]
  - Urinary retention [Unknown]
